FAERS Safety Report 17729051 (Version 1)
Quarter: 2020Q2

REPORT INFORMATION
  Report Type: Spontaneous
  Country: US (occurrence: US)
  Receive Date: 20200430
  Receipt Date: 20200430
  Transmission Date: 20200714
  Serious: Yes (Other)
  Sender: FDA-Public Use
  Company Number: None

PATIENT
  Age: 18 Year
  Sex: Male

DRUGS (7)
  1. DEKAS PLUS MULTIVITAMIN [Concomitant]
  2. SODIUM CHLORIDE 7% NEBULIZER SOLUTION [Concomitant]
  3. CREON 24000U [Concomitant]
  4. TRIKAFTA [Suspect]
     Active Substance: ELEXACAFTOR\IVACAFTOR\TEZACAFTOR
     Indication: CYSTIC FIBROSIS
     Route: 048
     Dates: start: 20200418
  5. ALBUTEROL HFA INHALER 90MCG/ACTUATION [Concomitant]
  6. OMEPRAZOLE 20MG CAPSULES [Concomitant]
     Active Substance: OMEPRAZOLE
  7. MELATONIN 3MG TABLETS [Concomitant]

REACTIONS (2)
  - Haemoptysis [None]
  - Sputum discoloured [None]

NARRATIVE: CASE EVENT DATE: 20200424
